FAERS Safety Report 23382832 (Version 1)
Quarter: 2024Q1

REPORT INFORMATION
  Report Type: Spontaneous
  Country: US (occurrence: US)
  Receive Date: 20240109
  Receipt Date: 20240109
  Transmission Date: 20240409
  Serious: No
  Sender: FDA-Public Use
  Company Number: US-OCULAR THERAPEUTIX-2023OCX00032

PATIENT
  Age: 76 Year
  Sex: Female

DRUGS (2)
  1. DEXTENZA [Suspect]
     Active Substance: DEXAMETHASONE
     Indication: Cataract operation
     Dosage: 0.4 MG, SINGLE, LACRIMAL CANALICULAR INSERTION IN THE LEFT LOWER PUNCTUM
     Route: 047
     Dates: start: 20230831, end: 202309
  2. MOXIFLOXACIN [Concomitant]
     Active Substance: MOXIFLOXACIN

REACTIONS (2)
  - Expulsion of medication [Recovered/Resolved]
  - Ocular discomfort [Recovered/Resolved]

NARRATIVE: CASE EVENT DATE: 20230901
